FAERS Safety Report 8611595-6 (Version None)
Quarter: 2012Q3

REPORT INFORMATION
  Report Type: 
  Country: None (occurrence: None)
  Receive Date: 20120822
  Receipt Date: 20120815
  Transmission Date: 20120928
  Serious: Yes (Other)
  Sender: FDA-Public Use
  Company Number: PHHY2011US63467

PATIENT
  Sex: Male

DRUGS (8)
  1. AFINITOR [Suspect]
     Dosage: 5 MG, DAILY
     Dates: start: 20120724
  2. TOPAMAX [Concomitant]
  3. DEPAKOTE [Concomitant]
  4. CLONIDINE [Concomitant]
  5. GLYCERIN SUPPOSITORIES [Concomitant]
  6. AFINITOR [Suspect]
     Indication: ASTROCYTOMA, LOW GRADE
     Dosage: 10 MG, DAILY
     Route: 048
     Dates: start: 20110623
  7. LAMICTAL [Concomitant]
  8. VITAMINS NOS [Concomitant]

REACTIONS (7)
  - LIP SWELLING [None]
  - ABNORMAL BEHAVIOUR [None]
  - WEIGHT DECREASED [None]
  - LIP DISORDER [None]
  - CHAPPED LIPS [None]
  - TICK-BORNE FEVER [None]
  - LIP HAEMORRHAGE [None]
